FAERS Safety Report 24036252 (Version 2)
Quarter: 2024Q3

REPORT INFORMATION
  Report Type: Spontaneous
  Country: US (occurrence: US)
  Receive Date: 20240701
  Receipt Date: 20240924
  Transmission Date: 20241017
  Serious: No
  Sender: PFIZER
  Company Number: US-PFIZER INC-202400197731

PATIENT
  Age: 1 Year
  Sex: Male

DRUGS (2)
  1. GENOTROPIN [Suspect]
     Active Substance: SOMATROPIN
     Dosage: 5 MG
  2. GENOTROPIN [Suspect]
     Active Substance: SOMATROPIN
     Dosage: 0.2 MG, SQ DAILY
     Route: 058

REACTIONS (4)
  - Device malfunction [Unknown]
  - Product physical issue [Unknown]
  - Device leakage [Unknown]
  - Device breakage [Unknown]
